FAERS Safety Report 20515618 (Version 1)
Quarter: 2022Q1

REPORT INFORMATION
  Report Type: Spontaneous
  Country: NG (occurrence: NG)
  Receive Date: 20220224
  Receipt Date: 20220224
  Transmission Date: 20220423
  Serious: Yes (Other)
  Sender: FDA-Public Use
  Company Number: NG-JNJFOC-20220126153

PATIENT
  Age: 36 Year
  Sex: Male

DRUGS (1)
  1. RISPERDAL [Suspect]
     Active Substance: RISPERIDONE
     Indication: Schizophrenia
     Dosage: ON RISPERIDONE FOR 15 YEARS PLUS
     Route: 048

REACTIONS (3)
  - Erectile dysfunction [Unknown]
  - Hyperprolactinaemia [Unknown]
  - Varicocele [Unknown]
